FAERS Safety Report 13046141 (Version 1)
Quarter: 2016Q4

REPORT INFORMATION
  Report Type: Spontaneous
  Country: US (occurrence: US)
  Receive Date: 20161220
  Receipt Date: 20161220
  Transmission Date: 20170207
  Serious: Yes (Other)
  Sender: FDA-Public Use
  Company Number: US-BAYER-2016-238089

PATIENT
  Age: 66 Year
  Sex: Male

DRUGS (1)
  1. BAYER ASPIRIN [Suspect]
     Active Substance: ASPIRIN
     Indication: PAIN
     Dosage: 24 DF,IN A DAY
     Route: 048
     Dates: start: 201611

REACTIONS (2)
  - Gastrointestinal ulcer haemorrhage [None]
  - Overdose [Unknown]

NARRATIVE: CASE EVENT DATE: 201611
